FAERS Safety Report 10447276 (Version 1)
Quarter: 2014Q3

REPORT INFORMATION
  Report Type: Spontaneous
  Country: IT (occurrence: IT)
  Receive Date: 20140911
  Receipt Date: 20140911
  Transmission Date: 20150326
  Serious: Yes (Hospitalization)
  Sender: FDA-Public Use
  Company Number: PHHY2014IT112314

PATIENT
  Age: 72 Year
  Sex: Male
  Weight: 65 kg

DRUGS (11)
  1. AMIODARONE [Concomitant]
     Active Substance: AMIODARONE
     Dosage: 1 DF, UNK
     Route: 048
  2. BLOPRESS [Concomitant]
     Active Substance: CANDESARTAN CILEXETIL
     Dosage: 8 MG, UNK
     Route: 048
  3. SOLOSA [Concomitant]
     Active Substance: GLIMEPIRIDE
     Dosage: 1 MG, UNK
     Route: 048
  4. ISOSORBIDE [Concomitant]
     Active Substance: ISOSORBIDE
     Dosage: 50 MG, UNK
     Route: 048
  5. ANTRA [Concomitant]
     Active Substance: OMEPRAZOLE
     Dosage: 1 DF, UNK
     Route: 048
  6. EUTIROX [Concomitant]
     Active Substance: LEVOTHYROXINE SODIUM
     Dosage: 1 DF, UNK
     Route: 048
  7. VOLTAREN [Suspect]
     Active Substance: DICLOFENAC SODIUM
     Indication: BACK PAIN
     Dosage: 1 DF, TOTAL
     Route: 048
     Dates: start: 20140728, end: 20140730
  8. URSOBIL [Concomitant]
     Dosage: 1 DF, UNK
     Route: 048
  9. COUMADIN [Suspect]
     Active Substance: WARFARIN SODIUM
     Indication: PROPHYLAXIS
     Dosage: 1 DF, AS NEEDED
     Route: 048
     Dates: start: 20100803, end: 20140731
  10. GLUCOPHAGE [Concomitant]
     Active Substance: METFORMIN HYDROCHLORIDE
     Dosage: 1500 MG, UNK
     Route: 048
  11. DOMPERIDONE [Concomitant]
     Active Substance: DOMPERIDONE
     Dosage: 2 DF, UNK
     Route: 048

REACTIONS (3)
  - Haemorrhagic erosive gastritis [Recovering/Resolving]
  - Iron deficiency anaemia [Recovering/Resolving]
  - International normalised ratio increased [Recovering/Resolving]

NARRATIVE: CASE EVENT DATE: 20140728
